FAERS Safety Report 8165398-X (Version None)
Quarter: 2012Q1

REPORT INFORMATION
  Report Type: 
  Country: None (occurrence: None)
  Receive Date: 20120223
  Receipt Date: 20120223
  Transmission Date: 20120608
  Serious: Yes (Other)
  Sender: FDA-Public Use
  Company Number: None

PATIENT
  Age: 69 Year
  Sex: Female
  Weight: 58.0604 kg

DRUGS (2)
  1. SIMVASTATIN [Suspect]
     Indication: BLOOD TRIGLYCERIDES INCREASED
     Dosage: 20 MG @ H.S. 1X @ H.S. ORAL TABLET
     Route: 048
     Dates: start: 20070101
  2. SIMVASTATIN [Suspect]
     Indication: BLOOD CHOLESTEROL INCREASED
     Dosage: 20 MG @ H.S. 1X @ H.S. ORAL TABLET
     Route: 048
     Dates: start: 20070101

REACTIONS (2)
  - MYALGIA [None]
  - INSOMNIA [None]
